FAERS Safety Report 25670967 (Version 1)
Quarter: 2025Q3

REPORT INFORMATION
  Report Type: Report from Study
  Country: US (occurrence: US)
  Receive Date: 20250812
  Receipt Date: 20250812
  Transmission Date: 20251021
  Serious: No
  Sender: SUNOVION
  Company Number: US-SUMITOMO PHARMA SWITZERLAND GMBH-2025SPA009996

PATIENT
  Age: 73 Year
  Sex: Male

DRUGS (18)
  1. ORGOVYX [Suspect]
     Active Substance: RELUGOLIX
     Indication: Prostate cancer
     Route: 048
  2. ORGOVYX [Suspect]
     Active Substance: RELUGOLIX
     Route: 048
  3. ATORVASTATIN [Concomitant]
     Active Substance: ATORVASTATIN
  4. CALCIUM\VITAMIN D [Concomitant]
     Active Substance: CALCIUM\VITAMIN D
  5. MAGNESIUM [Concomitant]
     Active Substance: MAGNESIUM
  6. CYMBALTA [Concomitant]
     Active Substance: DULOXETINE HYDROCHLORIDE
  7. VITAMINS [Concomitant]
     Active Substance: VITAMINS
  8. DONEPEZIL [Concomitant]
     Active Substance: DONEPEZIL
  9. HYDRALAZINE [Concomitant]
     Active Substance: HYDRALAZINE HYDROCHLORIDE
  10. LOSARTAN [Concomitant]
     Active Substance: LOSARTAN
  11. LYRICA [Concomitant]
     Active Substance: PREGABALIN
  12. METFORMIN [Concomitant]
     Active Substance: METFORMIN HYDROCHLORIDE
  13. MOUNJARO [Concomitant]
     Active Substance: TIRZEPATIDE
     Route: 058
  14. TACROLIMUS [Concomitant]
     Active Substance: TACROLIMUS
  15. VITAMIN B3 [Concomitant]
     Active Substance: NIACIN
  16. ZETIA [Concomitant]
     Active Substance: EZETIMIBE
  17. ZINC [Concomitant]
     Active Substance: ZINC
  18. ZYRTEC [Concomitant]
     Active Substance: CETIRIZINE HYDROCHLORIDE

REACTIONS (1)
  - Blood triglycerides increased [Unknown]
